FAERS Safety Report 10015913 (Version 3)
Quarter: 2014Q2

REPORT INFORMATION
  Report Type: Report from Study
  Country: CA (occurrence: CA)
  Receive Date: 20140317
  Receipt Date: 20140505
  Transmission Date: 20141212
  Serious: Yes (Hospitalization, Other)
  Sender: FDA-Public Use
  Company Number: CA-BRISTOL-MYERS SQUIBB COMPANY-19890128

PATIENT
  Age: 71 Year
  Sex: Female

DRUGS (1)
  1. ORENCIA [Suspect]
     Indication: RHEUMATOID ARTHRITIS
     Dosage: 1DF=750 UNIT NOS?3E73716-MAR2016
     Dates: start: 20090916

REACTIONS (5)
  - Headache [Unknown]
  - Dizziness [Unknown]
  - Basal cell carcinoma [Unknown]
  - Orthostatic hypotension [Unknown]
  - Vertigo [Not Recovered/Not Resolved]
